FAERS Safety Report 9394574 (Version 3)
Quarter: 2013Q4

REPORT INFORMATION
  Report Type: Report from Study
  Country: CA (occurrence: CA)
  Receive Date: 20130711
  Receipt Date: 20131219
  Transmission Date: 20140711
  Serious: Yes (Other)
  Sender: FDA-Public Use
  Company Number: PHHY2013CA006495

PATIENT
  Sex: Female

DRUGS (1)
  1. TASIGNA [Suspect]
     Indication: CHRONIC MYELOID LEUKAEMIA
     Dosage: 200 MG QAM, 400 MG QPM
     Route: 048
     Dates: start: 201006, end: 20130411

REACTIONS (8)
  - Gout [Unknown]
  - Erythema [Unknown]
  - Arthralgia [Unknown]
  - Joint swelling [Unknown]
  - Joint warmth [Unknown]
  - Leukaemia recurrent [Unknown]
  - Osteoarthritis [Unknown]
  - Bone pain [Not Recovered/Not Resolved]
